FAERS Safety Report 8255606 (Version 2)
Quarter: 2012Q4

REPORT INFORMATION
  Report Type: 
  Country: US (occurrence: US)
  Receive Date: 20111118
  Receipt Date: 20121002
  Transmission Date: 20130627
  Serious: Yes (Other)
  Sender: FDA-Public Use
  Company Number: US-US-EMD SERONO, INC.-7095139

PATIENT
  Age: 54 None
  Sex: Male

DRUGS (9)
  1. REBIF [Suspect]
     Indication: MULTIPLE SCLEROSIS
     Route: 058
     Dates: start: 2003
  2. REBIF [Suspect]
     Route: 058
     Dates: start: 20040507, end: 2012
  3. REBIF [Suspect]
     Route: 058
     Dates: start: 2012
  4. EFFEXOR [Concomitant]
     Indication: DEPRESSION
  5. NAMENDA [Concomitant]
     Indication: DEMENTIA
  6. TRAMADOL [Concomitant]
     Indication: PAIN
  7. SYNTHROID [Concomitant]
     Indication: HYPOTHYROIDISM
  8. MULTIVITAMIN [Concomitant]
     Indication: SUPPLEMENTATION THERAPY
  9. VITAMIN D [Concomitant]
     Indication: SUPPLEMENTATION THERAPY

REACTIONS (4)
  - Prostate cancer [Recovered/Resolved]
  - Skin cancer [Recovered/Resolved]
  - Blood testosterone decreased [Unknown]
  - Injection site bruising [Recovered/Resolved]
